FAERS Safety Report 9168279 (Version 2)
Quarter: 2013Q2

REPORT INFORMATION
  Report Type: Report from Study
  Country: CZ (occurrence: CZ)
  Receive Date: 20130318
  Receipt Date: 20130418
  Transmission Date: 20140414
  Serious: Yes (Disabling, Other)
  Sender: FDA-Public Use
  Company Number: PHHY2013CZ025633

PATIENT
  Age: 16 Year
  Sex: Female
  Weight: 49 kg

DRUGS (2)
  1. IMATINIB [Suspect]
     Indication: ACUTE LYMPHOCYTIC LEUKAEMIA
     Dosage: 500 MG, DAILY
     Route: 048
     Dates: start: 20130128
  2. VINCRISTIN [Concomitant]
     Dosage: 2 MG, WEEKLY
     Route: 042
     Dates: start: 20130121

REACTIONS (13)
  - Peripheral motor neuropathy [Recovering/Resolving]
  - Paresis [Recovering/Resolving]
  - Aphonia [Recovering/Resolving]
  - Ileus [Unknown]
  - Hyporeflexia [Unknown]
  - VIIth nerve paralysis [Unknown]
  - Lagophthalmos [Unknown]
  - Respiratory disorder [Unknown]
  - Hypotonia [Unknown]
  - Muscle disorder [Unknown]
  - Hypokinesia [Unknown]
  - Gastrointestinal disorder [Unknown]
  - Muscular weakness [Unknown]
